FAERS Safety Report 7956466-3 (Version None)
Quarter: 2011Q4

REPORT INFORMATION
  Report Type: 
  Country: None (occurrence: None)
  Receive Date: 20111205
  Receipt Date: 20111129
  Transmission Date: 20120403
  Serious: Yes (Life-Threatening)
  Sender: FDA-Public Use
  Company Number: US-ASTELLAS-2011US008021

PATIENT
  Age: 59 Year
  Sex: Male

DRUGS (1)
  1. AMEVIVE [Suspect]
     Indication: GRAFT VERSUS HOST DISEASE
     Dosage: UNK
     Route: 065

REACTIONS (2)
  - NEUTROPHIL COUNT DECREASED [None]
  - OFF LABEL USE [None]
